FAERS Safety Report 17313779 (Version 1)
Quarter: 2020Q1

REPORT INFORMATION
  Report Type: Spontaneous
  Country: US (occurrence: US)
  Receive Date: 20200124
  Receipt Date: 20200124
  Transmission Date: 20200409
  Serious: No
  Sender: FDA-Public Use
  Company Number: US-AUROBINDO-AUR-APL-2019-070168

PATIENT
  Age: 24 Year
  Sex: Female

DRUGS (3)
  1. ECONTRA ONE-STEP [Suspect]
     Active Substance: LEVONORGESTREL
     Indication: PRODUCT USED FOR UNKNOWN INDICATION
     Dosage: TAKEN ONE PILL WITHIN 3 DAYS AFTER EXPOSURE
     Route: 065
  2. NORTRIPTYLINE [Concomitant]
     Active Substance: NORTRIPTYLINE
     Indication: PRODUCT USED FOR UNKNOWN INDICATION
     Dosage: UNK
     Route: 065
  3. ECONTRA ONE-STEP [Suspect]
     Active Substance: LEVONORGESTREL
     Dosage: TAKEN WITHIN 3 HOURS AFTER EVENT
     Route: 065

REACTIONS (1)
  - Vomiting [Recovered/Resolved]
